FAERS Safety Report 19680186 (Version 1)
Quarter: 2021Q3

REPORT INFORMATION
  Report Type: Spontaneous
  Country: US (occurrence: US)
  Receive Date: 20210810
  Receipt Date: 20210810
  Transmission Date: 20211014
  Serious: No
  Sender: FDA-Public Use
  Company Number: US-LUPIN PHARMACEUTICALS INC.-2021-14173

PATIENT
  Sex: Male

DRUGS (9)
  1. ISOTRETINOIN. [Suspect]
     Active Substance: ISOTRETINOIN
     Indication: ALOPECIA SCARRING
     Dosage: 80 MILLIGRAM, QD
     Route: 048
  2. SULFAMETHOXAZOLE AND TRIMETHOPRIM [Suspect]
     Active Substance: SULFAMETHOXAZOLE\TRIMETHOPRIM
     Indication: ALOPECIA SCARRING
     Dosage: UNK
     Route: 048
  3. DOXYCYCLINE. [Suspect]
     Active Substance: DOXYCYCLINE
     Indication: ALOPECIA SCARRING
     Dosage: UNK
     Route: 048
  4. CLINDAMYCIN. [Suspect]
     Active Substance: CLINDAMYCIN
     Indication: ALOPECIA SCARRING
     Dosage: UNK
     Route: 048
  5. CLINDAMYCIN. [Suspect]
     Active Substance: CLINDAMYCIN
     Dosage: UNK LOTION
     Route: 061
  6. MINOCYCLINE [Suspect]
     Active Substance: MINOCYCLINE HYDROCHLORIDE
     Indication: ALOPECIA SCARRING
     Dosage: UNK
     Route: 048
  7. SALICYLIC ACID. [Suspect]
     Active Substance: SALICYLIC ACID
     Indication: ALOPECIA SCARRING
     Dosage: UNK
     Route: 061
  8. TRIAMCINOLONE ACETONIDE. [Concomitant]
     Active Substance: TRIAMCINOLONE ACETONIDE
     Indication: ALOPECIA SCARRING
     Dosage: UNK, AT 6 TO 9?WEEK INTERVALS
     Route: 065
  9. RIFAMPIN. [Suspect]
     Active Substance: RIFAMPIN
     Indication: ALOPECIA SCARRING
     Dosage: UNK
     Route: 048

REACTIONS (1)
  - Drug ineffective [Unknown]
